FAERS Safety Report 13763060 (Version 1)
Quarter: 2017Q3

REPORT INFORMATION
  Report Type: Spontaneous
  Country: FR (occurrence: FR)
  Receive Date: 20170718
  Receipt Date: 20170718
  Transmission Date: 20171127
  Serious: Yes (Hospitalization)
  Sender: FDA-Public Use
  Company Number: PHHY2017FR101978

PATIENT
  Age: 57 Year
  Sex: Male
  Weight: 55 kg

DRUGS (25)
  1. PIPERACILIN/TAZOBAKTAM MYLAN [Suspect]
     Active Substance: PIPERACILLIN SODIUM\TAZOBACTAM SODIUM
     Indication: ANTIBIOTIC THERAPY
     Dosage: 4 G, QD
     Route: 042
     Dates: end: 20170614
  2. IDARUBICINE MYLAN [Suspect]
     Active Substance: IDARUBICIN
     Indication: ACUTE MYELOID LEUKAEMIA
     Dosage: 15.3 MG, QD
     Route: 042
     Dates: start: 20170608
  3. CYCLO 3 FORT [Suspect]
     Active Substance: ASCORBIC ACID\HESPERIDIN METHYLCHALCONE\RUSCUS ACULEATUS ROOT
     Indication: HAEMORRHOIDS
     Dosage: 3 DF, QD
     Route: 048
     Dates: start: 20170608, end: 20170618
  4. FORTUM [Suspect]
     Active Substance: CEFTAZIDIME
     Indication: ANTIBIOTIC THERAPY
     Dosage: 6 G, QD
     Route: 042
     Dates: start: 20170614, end: 20170619
  5. TIENAM [Suspect]
     Active Substance: CILASTATIN SODIUM\IMIPENEM
     Indication: ANTIBIOTIC THERAPY
     Dosage: 1000 MG, QD
     Route: 042
     Dates: start: 20170619
  6. LASILIX [Suspect]
     Active Substance: FUROSEMIDE
     Indication: ACUTE PULMONARY OEDEMA
     Dosage: POSOLOGY BETWEEN 40 AND 120 MG
     Route: 042
     Dates: start: 20170616
  7. TOPALGIC (TRAMADOL HYDROCHLORIDE) [Suspect]
     Active Substance: TRAMADOL HYDROCHLORIDE
     Indication: ANALGESIC INTERVENTION SUPPORTIVE THERAPY
     Dosage: POSOLOGY BETWEEN 200 AND 400 MG DAILY
     Route: 042
     Dates: start: 20170611, end: 20170620
  8. ALDACTONE [Suspect]
     Active Substance: SPIRONOLACTONE
     Indication: OEDEMA
     Dosage: 1 DF, UNK
     Route: 048
     Dates: start: 20170619
  9. XANAX [Suspect]
     Active Substance: ALPRAZOLAM
     Indication: ANXIETY
     Dosage: 1 DF, UNK
     Route: 048
  10. NUTRITION CARE VITAMIN K1 [Suspect]
     Active Substance: PHYTONADIONE
     Indication: ELECTROLYTE SUBSTITUTION THERAPY
     Dosage: 1 DF, QD
     Route: 048
     Dates: start: 20170607, end: 20170619
  11. TRIFLUCAN [Suspect]
     Active Substance: FLUCONAZOLE
     Indication: CHEMOTHERAPY
     Dosage: 1 DF, UNK
     Route: 042
     Dates: start: 20170614, end: 20170617
  12. RISORDAN [Concomitant]
     Active Substance: ISOSORBIDE DINITRATE
     Indication: RESPIRATORY DISORDER
     Dosage: INJECTION OF 4 BLOUSES OF 2 MG
     Route: 065
  13. ZYVOXID [Suspect]
     Active Substance: LINEZOLID
     Indication: ANTIBIOTIC THERAPY
     Dosage: 1200 MG, QD
     Route: 042
     Dates: start: 20170619
  14. PRIMPERAN [Suspect]
     Active Substance: METOCLOPRAMIDE HYDROCHLORIDE
     Indication: NAUSEA
     Dosage: 1 DF, UNK
     Route: 048
     Dates: start: 20170613, end: 20170621
  15. VIALEBEX [Suspect]
     Active Substance: ALBUMIN HUMAN
     Indication: OEDEMA
     Dosage: 1 DF, UNK
     Route: 042
     Dates: start: 20170619
  16. VANCOMYCIN SANDOZ [Suspect]
     Active Substance: VANCOMYCIN
     Indication: STAPHYLOCOCCAL INFECTION
     Dosage: BETWEEN 2.5 AND 4 G
     Route: 042
     Dates: start: 20170610, end: 20170619
  17. ZOVIRAX [Suspect]
     Active Substance: ACYCLOVIR
     Indication: ANTIVIRAL TREATMENT
     Dosage: 250-500 MG, QD
     Route: 042
     Dates: start: 20170613
  18. PARACETAMOL [Concomitant]
     Active Substance: ACETAMINOPHEN
     Indication: DRUG TOLERANCE
     Route: 065
  19. ARACYTINE [Suspect]
     Active Substance: CYTARABINE
     Indication: ACUTE MYELOID LEUKAEMIA
     Dosage: 340 MG, QD
     Route: 042
     Dates: start: 20170608
  20. CANCIDAS [Suspect]
     Active Substance: CASPOFUNGIN ACETATE
     Indication: FUNGAL INFECTION
     Dosage: 50 MG, QD
     Route: 042
     Dates: start: 20160618
  21. OROZAMUDOL [Suspect]
     Active Substance: TRAMADOL
     Indication: ANALGESIC INTERVENTION SUPPORTIVE THERAPY
     Dosage: 2 DF, UNK
     Route: 048
     Dates: start: 20170611, end: 20170620
  22. PARACETAMOL B. BRAUN [Suspect]
     Active Substance: ACETAMINOPHEN
     Indication: ANALGESIC INTERVENTION SUPPORTIVE THERAPY
     Dosage: 2 G, QD
     Route: 042
     Dates: start: 20170617, end: 20170618
  23. SEDORRHOIDE /00967801/ [Suspect]
     Active Substance: BENZOCAINE\BUTAMBEN\DODECLONIUM\ENOXOLONE\ESCULIN
     Indication: HAEMORRHOIDS
     Dosage: 2 DF, UNK
     Route: 054
     Dates: start: 20170613, end: 20170619
  24. CODEINE PHOSPHATE [Concomitant]
     Active Substance: CODEINE PHOSPHATE
     Indication: DRUG TOLERANCE
     Route: 065
  25. TENORMIN [Suspect]
     Active Substance: ATENOLOL
     Indication: PRODUCT USED FOR UNKNOWN INDICATION
     Dosage: 0.5 DF, Q8H AT THE POSOLOGY OF 0.25 MG ONCE DAILY
     Route: 048

REACTIONS (3)
  - Hyperbilirubinaemia [Not Recovered/Not Resolved]
  - Atrial fibrillation [Recovering/Resolving]
  - Extrapyramidal disorder [Recovering/Resolving]

NARRATIVE: CASE EVENT DATE: 20170621
